FAERS Safety Report 4512927-0 (Version None)
Quarter: 2004Q4

REPORT INFORMATION
  Report Type: 
  Country: None (occurrence: None)
  Receive Date: 20041119
  Receipt Date: 20041119
  Transmission Date: 20050328
  Serious: Yes (Disabling)
  Sender: FDA-Public Use
  Company Number: None

PATIENT
  Age: 43 Year
  Sex: Male
  Weight: 86.637 kg

DRUGS (3)
  1. GEODON [Suspect]
     Dosage: 40 MG DAILY
     Dates: start: 20040301, end: 20040601
  2. PAXIL [Concomitant]
  3. MULTIVITAMIN [Concomitant]

REACTIONS (31)
  - ALOPECIA [None]
  - BACK DISORDER [None]
  - BLISTER [None]
  - BLOOD PRESSURE INCREASED [None]
  - BURNING SENSATION [None]
  - CHEST PAIN [None]
  - CHILLS [None]
  - CONDITION AGGRAVATED [None]
  - DRY SKIN [None]
  - ERECTILE DYSFUNCTION [None]
  - EXERCISE CAPACITY DECREASED [None]
  - EXTRASYSTOLES [None]
  - FATIGUE [None]
  - FEELING COLD [None]
  - FOOD CRAVING [None]
  - GASTROINTESTINAL DISORDER [None]
  - HYPOAESTHESIA [None]
  - INTERVERTEBRAL DISC PROTRUSION [None]
  - IRRITABLE BOWEL SYNDROME [None]
  - KELOID SCAR [None]
  - MEDICATION ERROR [None]
  - MENISCUS LESION [None]
  - NERVOUSNESS [None]
  - PAIN IN EXTREMITY [None]
  - PROSTATIC DISORDER [None]
  - PSYCHOMOTOR HYPERACTIVITY [None]
  - RASH [None]
  - RASH SCALY [None]
  - SEXUAL DYSFUNCTION [None]
  - SLEEP DISORDER [None]
  - WEIGHT INCREASED [None]
